FAERS Safety Report 6634352-9 (Version None)
Quarter: 2010Q1

REPORT INFORMATION
  Report Type: 
  Country: None (occurrence: None)
  Receive Date: 20100315
  Receipt Date: 20100112
  Transmission Date: 20100710
  Serious: Yes (Other)
  Sender: FDA-Public Use
  Company Number: CN-WYE-G04706609

PATIENT
  Sex: Male
  Weight: 72 kg

DRUGS (3)
  1. MOROCTOCOG ALFA AF OSA [Suspect]
     Indication: FACTOR VIII DEFICIENCY
     Dosage: 3549IU GIVEN FOR INITIAL RECOVERY
     Route: 040
     Dates: start: 20090408, end: 20090408
  2. MOROCTOCOG ALFA AF OSA [Suspect]
     Dosage: 9216IU GIVEN ON DEMAND
     Route: 040
     Dates: start: 20090416, end: 20090928
  3. MOROCTOCOG ALFA AF OSA [Suspect]
     Dosage: 3549IU GIVEN FOR FINAL RECOVERY
     Route: 040
     Dates: start: 20091008, end: 20091008

REACTIONS (1)
  - FACTOR VIII INHIBITION [None]
